FAERS Safety Report 19330602 (Version 1)
Quarter: 2021Q2

REPORT INFORMATION
  Report Type: Spontaneous
  Country: FR (occurrence: FR)
  Receive Date: 20210528
  Receipt Date: 20210528
  Transmission Date: 20210717
  Serious: Yes (Other)
  Sender: FDA-Public Use
  Company Number: PHBS1978FR01918

PATIENT
  Age: 47 Year
  Sex: Male

DRUGS (1)
  1. RIFAMPICIN [Suspect]
     Active Substance: RIFAMPIN
     Indication: TUBERCULOUS PLEURISY
     Dosage: 450 MG, QD
     Route: 048

REACTIONS (6)
  - Haemolysis [Unknown]
  - Haematuria [Unknown]
  - Nausea [Unknown]
  - Immune thrombocytopenia [Recovered/Resolved]
  - Back pain [Unknown]
  - Purpura [Unknown]

NARRATIVE: CASE EVENT DATE: 197306
